FAERS Safety Report 10674037 (Version 1)
Quarter: 2014Q4

REPORT INFORMATION
  Report Type: Spontaneous
  Country: US (occurrence: None)
  Receive Date: 20141223
  Receipt Date: 20141223
  Transmission Date: 20150529
  Serious: Yes (Other)
  Sender: FDA-Public Use
  Company Number: None

PATIENT
  Age: 83 Year
  Sex: Female
  Weight: 61.24 kg

DRUGS (4)
  1. DUREYAL [Concomitant]
  2. PRALEUS [Concomitant]
  3. BESIVANCE [Suspect]
     Active Substance: BESIFLOXACIN
     Indication: CATARACT OPERATION
     Dosage: 0.6 %, 3 TIMES 2 DAYS BEFORE SURGERY, 3 TIMES DAY AFTER 1 DROP 3 TIMES A DAY FOR 14 DAYS, THREE 2 TODAY, EYEDROP
     Dates: start: 20141110, end: 20141120
  4. TYLORAL [Concomitant]

REACTIONS (3)
  - Eye irritation [None]
  - Visual field defect [None]
  - Visual acuity reduced [None]

NARRATIVE: CASE EVENT DATE: 20141119
